FAERS Safety Report 15092619 (Version 1)
Quarter: 2018Q2

REPORT INFORMATION
  Report Type: Spontaneous
  Country: FR (occurrence: FR)
  Receive Date: 20180629
  Receipt Date: 20180629
  Transmission Date: 20180711
  Serious: Yes (Hospitalization)
  Sender: FDA-Public Use
  Company Number: FR-PFIZER INC-2018259347

PATIENT
  Age: 2 Year
  Sex: Male
  Weight: 14 kg

DRUGS (1)
  1. ADVILMED ENFANTS ET NOURRISSONS [Suspect]
     Active Substance: IBUPROFEN
     Indication: ABDOMINAL PAIN
     Dosage: 2 DOSE WEIGHT, 1X/DAY
     Route: 048
     Dates: start: 20180509, end: 20180509

REACTIONS (1)
  - Epidermolysis [Recovered/Resolved]

NARRATIVE: CASE EVENT DATE: 20180509
